FAERS Safety Report 10073650 (Version 1)
Quarter: 2014Q2

REPORT INFORMATION
  Report Type: Spontaneous
  Country: JP (occurrence: JP)
  Receive Date: 20140411
  Receipt Date: 20140411
  Transmission Date: 20141212
  Serious: Yes (Other)
  Sender: FDA-Public Use
  Company Number: PHHY2014JP043689

PATIENT
  Age: 67 Year
  Sex: Male

DRUGS (5)
  1. PREDNISOLONE [Suspect]
     Indication: RHEUMATOID ARTHRITIS
     Dosage: 10 MG, 0 TO 10MG/DAY
     Route: 048
  2. SODIUM AUROTHIOMALATE INJECTION BP [Suspect]
     Indication: RHEUMATOID ARTHRITIS
     Dosage: 25 MG/M2, UNK
     Route: 042
  3. METHOTREXATE [Concomitant]
     Indication: RHEUMATOID ARTHRITIS
     Dosage: 6 MG, QW
     Route: 048
  4. METHOTREXATE [Concomitant]
     Dosage: 12 MG/2 WEEKS
     Route: 048
  5. DICLOFENAC SODIUM [Concomitant]
     Indication: PAIN
     Dosage: 75 MG, QD
     Route: 048

REACTIONS (1)
  - Rheumatoid arthritis [Unknown]
